FAERS Safety Report 10076106 (Version 1)
Quarter: 2014Q2

REPORT INFORMATION
  Report Type: Spontaneous
  Country: US (occurrence: US)
  Receive Date: 20140414
  Receipt Date: 20140414
  Transmission Date: 20141212
  Serious: No
  Sender: FDA-Public Use
  Company Number: US-PFIZER INC-2014102297

PATIENT
  Age: 53 Year
  Sex: Female
  Weight: 104.31 kg

DRUGS (2)
  1. LYRICA [Suspect]
     Indication: FIBROMYALGIA
     Dosage: 75 MG, 5X/DAY
     Dates: start: 2012
  2. DEPAKOTE [Concomitant]
     Dosage: 500 MG, 4X/DAY

REACTIONS (1)
  - Drug effect incomplete [Unknown]
